FAERS Safety Report 25494864 (Version 1)
Quarter: 2025Q2

REPORT INFORMATION
  Report Type: Spontaneous
  Country: US (occurrence: None)
  Receive Date: 20250630
  Receipt Date: 20250630
  Transmission Date: 20250717
  Serious: Yes (Hospitalization)
  Sender: FDA-CTU
  Company Number: None

PATIENT
  Age: 16 Year
  Sex: Female

DRUGS (12)
  1. PULMOZYME [Suspect]
     Active Substance: DORNASE ALFA
     Indication: Cystic fibrosis
     Dosage: OTHER FREQUENCY : TWICE A DAY ;?
     Route: 055
  2. ZENPEP [Suspect]
     Active Substance: PANCRELIPASE AMYLASE\PANCRELIPASE LIPASE\PANCRELIPASE PROTEASE
     Route: 048
  3. ALYFTREK [Suspect]
     Active Substance: DEUTIVACAFTOR\TEZACAFTOR\VANZACAFTOR
  4. ALBUTEROL [Suspect]
     Active Substance: ALBUTEROL
  5. DULERA [Suspect]
     Active Substance: FORMOTEROL FUMARATE DIHYDRATE\MOMETASONE FUROATE
  6. VENTOLIN [Suspect]
     Active Substance: ALBUTEROL SULFATE
  7. ACETYLCYSTEINE [Suspect]
     Active Substance: ACETYLCYSTEINE
  8. PREGABALIN [Suspect]
     Active Substance: PREGABALIN
  9. SODIUM FLUORIDE [Suspect]
     Active Substance: SODIUM FLUORIDE
  10. OMEPRAZOLE [Suspect]
     Active Substance: OMEPRAZOLE
  11. INSULIN LISPRO [Suspect]
     Active Substance: INSULIN LISPRO
  12. LANTUS [Suspect]
     Active Substance: INSULIN GLARGINE

REACTIONS (1)
  - Infective pulmonary exacerbation of cystic fibrosis [None]

NARRATIVE: CASE EVENT DATE: 20250601
